FAERS Safety Report 8212482-8 (Version None)
Quarter: 2012Q1

REPORT INFORMATION
  Report Type: 
  Country: None (occurrence: None)
  Receive Date: 20120315
  Receipt Date: 20120308
  Transmission Date: 20120608
  Serious: Yes (Other)
  Sender: FDA-Public Use
  Company Number: US-GLAXOSMITHKLINE-A0963528A

PATIENT
  Age: 75 Year
  Sex: Male
  Weight: 106.4 kg

DRUGS (5)
  1. AMIODARONE HYDROCHLORIDE [Concomitant]
  2. ALTACE [Concomitant]
  3. LIPITOR [Concomitant]
  4. GLIMEPIRIDE [Concomitant]
  5. AVODART [Suspect]
     Indication: BENIGN PROSTATIC HYPERPLASIA
     Dosage: .5MG UNKNOWN
     Route: 048
     Dates: start: 20070328, end: 20111130

REACTIONS (3)
  - NEOPLASM PROSTATE [None]
  - PROSTATE CANCER METASTATIC [None]
  - PROSTATIC SPECIFIC ANTIGEN INCREASED [None]
